FAERS Safety Report 9015114 (Version 1)
Quarter: 2013Q1

REPORT INFORMATION
  Report Type: Spontaneous
  Country: US (occurrence: None)
  Receive Date: 20130109
  Receipt Date: 20130109
  Transmission Date: 20140127
  Serious: No
  Sender: FDA-Public Use
  Company Number: None

PATIENT
  Age: 5 Year
  Sex: Male
  Weight: 20.4 kg

DRUGS (2)
  1. IDURSULFASE IT (IDURSULFASE IT) CONCENTRATE FOR SOLUTION FOR INFUSION? [Suspect]
     Route: 037
  2. ELAPRASE (IDURSULFASE) CONCENTRATE FOR SOLUTION FOR INFUSION [Concomitant]

REACTIONS (5)
  - Implant site reaction [None]
  - Catheter site swelling [None]
  - Device dislocation [None]
  - Pseudomeningocele [None]
  - Procedural complication [None]
